FAERS Safety Report 20500510 (Version 1)
Quarter: 2022Q1

REPORT INFORMATION
  Report Type: Spontaneous
  Country: US (occurrence: US)
  Receive Date: 20220222
  Receipt Date: 20220222
  Transmission Date: 20220423
  Serious: No
  Sender: FDA-Public Use
  Company Number: US-SA-SAC20220211001361

PATIENT
  Sex: Female

DRUGS (5)
  1. DUPIXENT [Suspect]
     Active Substance: DUPILUMAB
     Indication: Dermatitis atopic
     Dosage: UNK MG, QOW
     Route: 058
  2. SODIUM CHLORIDE [Concomitant]
     Active Substance: SODIUM CHLORIDE
  3. LYSINE [Concomitant]
     Active Substance: LYSINE
     Dosage: 500 MG, QD
  4. FAMOTIDINE [Concomitant]
     Active Substance: FAMOTIDINE
     Indication: Gastrooesophageal reflux disease
  5. NEOSPORIN [NEOMYCIN SULFATE;POLYMYXIN B SULFATE] [Concomitant]

REACTIONS (11)
  - Sinus congestion [Unknown]
  - Oral herpes [Unknown]
  - Gastritis [Unknown]
  - Inflammation [Unknown]
  - Constipation [Unknown]
  - Gout [Unknown]
  - Rash [Unknown]
  - Osteoarthritis [Unknown]
  - Conjunctivitis [Unknown]
  - Eczema [Unknown]
  - Sinus operation [Unknown]
